FAERS Safety Report 5974270-2 (Version None)
Quarter: 2008Q4

REPORT INFORMATION
  Report Type: 
  Country: None (occurrence: None)
  Receive Date: 20081128
  Receipt Date: 20081113
  Transmission Date: 20090506
  Serious: Yes (Hospitalization)
  Sender: FDA-Public Use
  Company Number: US025027

PATIENT
  Age: 57 Year
  Sex: Male

DRUGS (2)
  1. FENTORA [Suspect]
     Indication: CANCER PAIN
     Dosage: 400 UG 400UG Q6HR AS NEEDED ORAL
     Route: 048
     Dates: start: 20080903, end: 20081004
  2. FENTORA [Suspect]
     Indication: CANCER PAIN
     Dosage: 800 UG 800UG Q5HR AS NEEDED BUCCAL
     Route: 002
     Dates: start: 20081004

REACTIONS (7)
  - ABDOMINAL PAIN [None]
  - CHEST PAIN [None]
  - CONDITION AGGRAVATED [None]
  - DRUG PRESCRIBING ERROR [None]
  - FAECALOMA [None]
  - NAUSEA [None]
  - VOMITING [None]
